FAERS Safety Report 17235867 (Version 1)
Quarter: 2020Q1

REPORT INFORMATION
  Report Type: Report from Study
  Country: US (occurrence: US)
  Receive Date: 20200106
  Receipt Date: 20200106
  Transmission Date: 20200409
  Serious: Yes (Other)
  Sender: FDA-Public Use
  Company Number: US-UCBSA-2019056559

PATIENT
  Sex: Female

DRUGS (2)
  1. ROTIGOTINE [Suspect]
     Active Substance: ROTIGOTINE
     Dosage: UNK
     Dates: start: 2019
  2. ROTIGOTINE [Suspect]
     Active Substance: ROTIGOTINE
     Indication: PRODUCT USED FOR UNKNOWN INDICATION
     Dosage: UNK
     Dates: start: 201907, end: 2019

REACTIONS (3)
  - Product dose omission [Unknown]
  - Surgery [Unknown]
  - Restless legs syndrome [Unknown]

NARRATIVE: CASE EVENT DATE: 2019
